FAERS Safety Report 24895171 (Version 1)
Quarter: 2025Q1

REPORT INFORMATION
  Report Type: Spontaneous
  Country: CA (occurrence: CA)
  Receive Date: 20250128
  Receipt Date: 20250128
  Transmission Date: 20250409
  Serious: Yes (Hospitalization, Other)
  Sender: PFIZER
  Company Number: CA-PFIZER INC-202500015302

PATIENT
  Age: 53 Year
  Sex: Male

DRUGS (10)
  1. MITOXANTRONE HYDROCHLORIDE [Suspect]
     Active Substance: MITOXANTRONE HYDROCHLORIDE
     Indication: Acute myeloid leukaemia
     Dosage: 16 MG, DAILY
     Route: 042
     Dates: start: 19931122, end: 19931126
  2. MITOXANTRONE HYDROCHLORIDE [Suspect]
     Active Substance: MITOXANTRONE HYDROCHLORIDE
     Route: 042
     Dates: start: 19940117, end: 19940121
  3. MITOXANTRONE HYDROCHLORIDE [Suspect]
     Active Substance: MITOXANTRONE HYDROCHLORIDE
     Dosage: THIRD COURSE
     Route: 042
     Dates: start: 19940314, end: 19940318
  4. ETOPOSIDE [Suspect]
     Active Substance: ETOPOSIDE
     Indication: Acute myeloid leukaemia
     Dosage: FOR 5 DAYS
     Route: 042
     Dates: start: 19931122, end: 19931126
  5. ETOPOSIDE [Suspect]
     Active Substance: ETOPOSIDE
     Dosage: SECOND 5-DAY COURSE
     Route: 042
     Dates: start: 19940117, end: 19940121
  6. ETOPOSIDE [Suspect]
     Active Substance: ETOPOSIDE
     Dosage: THIRD COURSE
     Route: 042
     Dates: start: 19940314, end: 19940318
  7. CEFTAZIDIME [Suspect]
     Active Substance: CEFTAZIDIME
     Indication: Antibiotic therapy
     Dosage: 2 G, 3X/DAY
     Route: 042
     Dates: start: 1993
  8. CIPROFLOXACIN [Suspect]
     Active Substance: CIPROFLOXACIN
     Indication: Antibiotic therapy
     Dosage: 750 MG, 2X/DAY
     Route: 048
     Dates: start: 1993
  9. VANCOMYCIN [Suspect]
     Active Substance: VANCOMYCIN
     Indication: Antibiotic therapy
     Route: 042
  10. VANCOMYCIN [Suspect]
     Active Substance: VANCOMYCIN
     Dosage: 1 G, 2X/DAY
     Route: 042

REACTIONS (2)
  - Clostridium difficile colitis [Recovering/Resolving]
  - Neutropenia [Recovering/Resolving]

NARRATIVE: CASE EVENT DATE: 19930101
